FAERS Safety Report 12531243 (Version 1)
Quarter: 2016Q3

REPORT INFORMATION
  Report Type: Report from Study
  Country: JP (occurrence: JP)
  Receive Date: 20160706
  Receipt Date: 20160706
  Transmission Date: 20161109
  Serious: Yes (Hospitalization)
  Sender: FDA-Public Use
  Company Number: JP-SA-2016SA122091

PATIENT
  Age: 71 Year
  Sex: Female
  Weight: 62.4 kg

DRUGS (11)
  1. AIDEITOROL [Concomitant]
     Dates: start: 20111004
  2. PLAVIX [Suspect]
     Active Substance: CLOPIDOGREL BISULFATE
     Indication: CEREBROVASCULAR ACCIDENT
     Route: 065
     Dates: start: 20110915, end: 20110921
  3. ASCOMARNA [Concomitant]
     Dates: start: 20111004
  4. MAIBASTAN [Concomitant]
     Active Substance: PRAVASTATIN SODIUM
  5. ETICALM [Concomitant]
     Active Substance: ETIZOLAM
     Dates: start: 20111004
  6. CONIEL [Concomitant]
     Active Substance: BENIDIPINE HYDROCHLORIDE
     Dates: end: 20120111
  7. CALNATE [Concomitant]
     Dates: start: 20111004
  8. KETOBUN [Concomitant]
     Dates: start: 20111004
  9. PLAVIX [Suspect]
     Active Substance: CLOPIDOGREL BISULFATE
     Indication: CEREBROVASCULAR ACCIDENT
     Route: 065
     Dates: start: 20110922, end: 20111219
  10. ITOROL [Concomitant]
     Active Substance: ISOSORBIDE MONONITRATE
  11. FANMIL R [Concomitant]

REACTIONS (1)
  - Atrial fibrillation [Recovered/Resolved]

NARRATIVE: CASE EVENT DATE: 20111215
